FAERS Safety Report 9305511 (Version 1)
Quarter: 2013Q2

REPORT INFORMATION
  Report Type: Spontaneous
  Country: FR (occurrence: FR)
  Receive Date: 20130523
  Receipt Date: 20130523
  Transmission Date: 20140414
  Serious: Yes (Other)
  Sender: FDA-Public Use
  Company Number: FR-ABBOTT-13P-056-1079728-00

PATIENT
  Age: 32 Year
  Sex: Male
  Weight: 120 kg

DRUGS (8)
  1. HUMIRA [Suspect]
     Indication: PSORIATIC ARTHROPATHY
     Dates: start: 20121214, end: 20130202
  2. METHOTREXATE [Concomitant]
     Indication: PRODUCT USED FOR UNKNOWN INDICATION
     Dates: start: 20121214
  3. DICLOFENAC SODIQUE [Concomitant]
     Indication: PSORIATIC ARTHROPATHY
     Route: 048
     Dates: start: 20120803
  4. OGAST [Concomitant]
     Indication: DYSPEPSIA
     Dates: start: 20120803
  5. CORTANCYL [Concomitant]
     Indication: PSORIATIC ARTHROPATHY
     Route: 048
     Dates: start: 20111203
  6. METOJECT [Concomitant]
     Indication: PSORIATIC ARTHROPATHY
     Route: 058
     Dates: start: 20110408
  7. DOLIPRANE [Concomitant]
     Indication: PSORIATIC ARTHROPATHY
     Route: 048
     Dates: start: 20110910
  8. SPECIAFOLDINE [Concomitant]
     Indication: ANAEMIA

REACTIONS (6)
  - Asthenia [Recovered/Resolved]
  - Pain [Recovering/Resolving]
  - Headache [Recovered/Resolved]
  - Psoriasis [Recovering/Resolving]
  - Psoriasis [Recovered/Resolved]
  - Drug ineffective [Recovered/Resolved]
